FAERS Safety Report 5311976-2 (Version None)
Quarter: 2007Q2

REPORT INFORMATION
  Report Type: 
  Country: None (occurrence: None)
  Receive Date: 20070430
  Receipt Date: 20060614
  Transmission Date: 20071010
  Serious: No
  Sender: FDA-Public Use
  Company Number: 2006UW12787

PATIENT
  Age: 70 Year
  Sex: Male
  Weight: 85.7 kg

DRUGS (6)
  1. NEXIUM [Suspect]
     Indication: HIATUS HERNIA
     Route: 048
     Dates: start: 20060101
  2. NEXIUM [Suspect]
     Route: 048
  3. CLARINEX [Concomitant]
  4. AVODART [Concomitant]
  5. CARDURA [Concomitant]
  6. CARDURA [Concomitant]

REACTIONS (2)
  - BLOOD PRESSURE DECREASED [None]
  - DIZZINESS [None]
